FAERS Safety Report 6447806-5 (Version None)
Quarter: 2009Q4

REPORT INFORMATION
  Report Type: 
  Country: None (occurrence: None)
  Receive Date: 20091120
  Receipt Date: 20090817
  Transmission Date: 20100525
  Serious: No
  Sender: FDA-Public Use
  Company Number: A0800424A

PATIENT
  Age: 63 Year
  Sex: Female
  Weight: 70.5 kg

DRUGS (12)
  1. VERAMYST [Suspect]
     Dosage: 2SPR PER DAY
     Route: 045
     Dates: start: 20090429, end: 20090504
  2. SYNTHROID [Concomitant]
  3. OMEPRAZOLE [Concomitant]
  4. VITAMIN E [Concomitant]
  5. FISH OIL [Concomitant]
  6. CALCIUM CITRATE [Concomitant]
  7. ESTRADIOL [Concomitant]
  8. MULTIVITAMIN [Concomitant]
  9. ACIDOPHILUS [Concomitant]
  10. ASPIRIN [Concomitant]
     Dosage: 81MG PER DAY
  11. DETROL [Concomitant]
  12. ST JOHNS WORT [Concomitant]

REACTIONS (1)
  - EYE PAIN [None]
